FAERS Safety Report 4457955-9 (Version None)
Quarter: 2004Q3

REPORT INFORMATION
  Report Type: 
  Country: None (occurrence: None)
  Receive Date: 20040924
  Receipt Date: 20040913
  Transmission Date: 20050211
  Serious: Yes (Other)
  Sender: FDA-Public Use
  Company Number: CN-BRISTOL-MYERS SQUIBB COMPANY-12700035

PATIENT
  Age: 65 Year
  Sex: Male

DRUGS (4)
  1. ACETYLSALICYLIC ACID [Suspect]
     Route: 048
     Dates: start: 20040301, end: 20040401
  2. PRAVASTATIN SODIUM [Suspect]
     Route: 048
     Dates: start: 20040301, end: 20040401
  3. METOPROLOL TARTRATE [Suspect]
     Route: 048
     Dates: start: 20040301, end: 20040401
  4. PLAVIX [Suspect]
     Indication: ACUTE MYOCARDIAL INFARCTION
     Route: 048
     Dates: start: 20040301, end: 20040401

REACTIONS (1)
  - THROMBOCYTOPENIA [None]
